FAERS Safety Report 12983949 (Version 3)
Quarter: 2019Q2

REPORT INFORMATION
  Report Type: Spontaneous
  Country: US (occurrence: US)
  Receive Date: 20161129
  Receipt Date: 20190620
  Transmission Date: 20190711
  Serious: Yes (Hospitalization)
  Sender: FDA-Public Use
  Company Number: US-INDIVIOR LIMITED-INDV-096826-2016

PATIENT
  Age: 33 Year
  Sex: Male

DRUGS (3)
  1. BUPRENORPHINE/NALOXONE [Suspect]
     Active Substance: BUPRENORPHINE\NALOXONE
     Indication: DRUG DEPENDENCE
     Dosage: 4MG, UNK
     Route: 065
  2. THC [Suspect]
     Active Substance: DRONABINOL
     Indication: PRODUCT USED FOR UNKNOWN INDICATION
     Dosage: UNKNOWN
     Route: 065
  3. CANNABIS [Suspect]
     Active Substance: CANNABIS SATIVA SUBSP. INDICA TOP
     Indication: PRODUCT USED FOR UNKNOWN INDICATION
     Dosage: UNK
     Route: 055

REACTIONS (7)
  - Pyrexia [Recovered/Resolved]
  - Chills [Recovered/Resolved]
  - Drug screen positive [Unknown]
  - Drug abuse [Unknown]
  - Night sweats [Recovered/Resolved]
  - Malaise [Recovered/Resolved]
  - Ischaemic stroke [Recovered/Resolved]
